FAERS Safety Report 9433659 (Version 1)
Quarter: 2013Q3

REPORT INFORMATION
  Report Type: Spontaneous
  Country: US (occurrence: US)
  Receive Date: 20130731
  Receipt Date: 20130731
  Transmission Date: 20140515
  Serious: Yes (Hospitalization, Other)
  Sender: FDA-Public Use
  Company Number: US-BAXTER-2013BAX029459

PATIENT
  Age: 78 Year
  Sex: Male

DRUGS (3)
  1. METRONIDAZOLE INJECTION, USP RTU? [Suspect]
     Indication: CLOSTRIDIUM DIFFICILE INFECTION
     Route: 042
  2. VANCOMYCIN [Suspect]
     Indication: CLOSTRIDIUM DIFFICILE INFECTION
     Route: 048
  3. CEPHALEXIN [Concomitant]
     Indication: PRODUCT USED FOR UNKNOWN INDICATION

REACTIONS (2)
  - Clostridium difficile infection [Recovered/Resolved]
  - Colitis [Unknown]
